FAERS Safety Report 4786671-9 (Version None)
Quarter: 2005Q4

REPORT INFORMATION
  Report Type: 
  Country: None (occurrence: None)
  Receive Date: 20051003
  Receipt Date: 20051003
  Transmission Date: 20060501
  Serious: Yes (Other)
  Sender: FDA-Public Use
  Company Number: None

PATIENT
  Age: 70 Year
  Sex: Male
  Weight: 103 kg

DRUGS (8)
  1. SODIUM POLYSTYRENE SULFONATE SUSPENSION 15G/60ML CAROLINA MEDICAL PROD [Suspect]
     Indication: HYPERKALAEMIA
     Dosage: 60ML 1X PO
     Route: 048
     Dates: start: 20050711, end: 20050711
  2. ABILIFY [Concomitant]
  3. DEPAKOTE [Concomitant]
  4. ZYPREXA [Concomitant]
  5. DIOVAN [Concomitant]
  6. SYNTHROID [Concomitant]
  7. LASIX [Concomitant]
  8. VITAMIN E [Concomitant]

REACTIONS (1)
  - HYPOTHERMIA [None]
